FAERS Safety Report 8517205 (Version 4)
Quarter: 2013Q3

REPORT INFORMATION
  Report Type: Spontaneous
  Country: US (occurrence: US)
  Receive Date: 20120417
  Receipt Date: 20130719
  Transmission Date: 20140515
  Serious: Yes (Other)
  Sender: FDA-Public Use
  Company Number: US-ASTRAZENECA-2010SE45405

PATIENT
  Age: 1021 Month
  Sex: Female
  Weight: 54.4 kg

DRUGS (12)
  1. NEXIUM [Suspect]
     Indication: GASTRIC DISORDER
     Route: 048
  2. TOPROL XL [Suspect]
     Indication: BLOOD PRESSURE ABNORMAL
     Route: 048
     Dates: start: 2003, end: 201301
  3. TOPROL XL [Suspect]
     Indication: BLOOD PRESSURE ABNORMAL
     Route: 048
     Dates: start: 201301
  4. TOPROL XL [Suspect]
     Indication: BLOOD PRESSURE ABNORMAL
     Route: 048
     Dates: start: 2003
  5. NORVASC [Suspect]
     Route: 065
  6. PRAVACHOL [Concomitant]
     Indication: BLOOD CHOLESTEROL ABNORMAL
  7. PRAVACHOL [Concomitant]
     Indication: BLOOD CHOLESTEROL ABNORMAL
     Dosage: GENERIC
  8. ASA [Concomitant]
  9. CITALOPRAM [Concomitant]
     Indication: DEPRESSION
  10. ECOTRIN [Concomitant]
     Indication: PLATELET DISORDER
     Route: 048
  11. ECOTRIN [Concomitant]
     Indication: ANTICOAGULANT THERAPY
     Route: 048
  12. NITRO PATCH [Concomitant]
     Indication: ANGINA PECTORIS
     Dosage: AS REQUIRED
     Route: 061

REACTIONS (16)
  - Blood pressure increased [Recovered/Resolved]
  - Gastric haemorrhage [Recovered/Resolved]
  - Aphagia [Unknown]
  - Weight decreased [Unknown]
  - Feeling cold [Unknown]
  - Blood pressure inadequately controlled [Unknown]
  - Stress [Unknown]
  - Adverse event [Unknown]
  - Chest pain [Recovered/Resolved]
  - Hypotension [Unknown]
  - Peripheral coldness [Unknown]
  - Peripheral coldness [Unknown]
  - Dyspepsia [Unknown]
  - Epigastric discomfort [Unknown]
  - Abdominal pain upper [Unknown]
  - Drug ineffective [Unknown]
